FAERS Safety Report 8981701 (Version 1)
Quarter: 2012Q4

REPORT INFORMATION
  Report Type: 
  Country: US (occurrence: US)
  Receive Date: 20121223
  Receipt Date: 20121223
  Transmission Date: 20130627
  Serious: Yes (Other)
  Sender: FDA-Public Use
  Company Number: US-BAYER-2012-134579

PATIENT
  Age: 53 Year
  Sex: Male

DRUGS (3)
  1. XARELTO [Suspect]
     Indication: CEREBROVASCULAR ACCIDENT PROPHYLAXIS
     Dosage: 20 mg, UNK
     Route: 048
  2. XARELTO [Suspect]
     Indication: ATRIAL FIBRILLATION
     Dosage: 10 mg, UNK
     Route: 048
  3. ACETYLSALICYLIC ACID({=100 MG) [Suspect]
     Indication: PRODUCT USED FOR UNKNOWN INDICATION
     Dosage: UNK
     Route: 065

REACTIONS (2)
  - Haemarthrosis [Recovered/Resolved]
  - Incorrect dose administered [Not Recovered/Not Resolved]
